FAERS Safety Report 13197801 (Version 7)
Quarter: 2018Q4

REPORT INFORMATION
  Report Type: Spontaneous
  Country: US (occurrence: US)
  Receive Date: 20170208
  Receipt Date: 20181120
  Transmission Date: 20190204
  Serious: Yes (Disabling, Other)
  Sender: FDA-Public Use
  Company Number: US-PFIZER INC-2017056065

PATIENT
  Age: 57 Year
  Sex: Male

DRUGS (18)
  1. DILANTIN [Suspect]
     Active Substance: PHENYTOIN
     Dosage: 500 MG, DAILY (100 MG TWO CAPSULES AM, ONE CAPSULE AT NOON AND TWO CAPSULES PM
     Route: 048
     Dates: start: 20061030
  2. LORAZEPAM. [Concomitant]
     Active Substance: LORAZEPAM
     Indication: ANXIETY
     Dosage: 1 DF, UNK
  3. BUSPIRONE [Concomitant]
     Active Substance: BUSPIRONE HYDROCHLORIDE
     Indication: DEPRESSION
     Dosage: 1 DF, 2X/DAY
  4. DILANTIN [Suspect]
     Active Substance: PHENYTOIN
     Dosage: 400 MG, DAILY (100 MG CAPSULE ONE IN AM, ONE CAPSULE AT NOON, 2 CAPSULES PM)
     Route: 048
     Dates: start: 20070924
  5. LAMICTAL [Concomitant]
     Active Substance: LAMOTRIGINE
     Dosage: UNK
     Dates: start: 2009
  6. PHENOBARBITAL. [Concomitant]
     Active Substance: PHENOBARBITAL
     Indication: SEIZURE
     Dosage: UNK
     Dates: start: 1957, end: 1966
  7. DILANTIN [Suspect]
     Active Substance: PHENYTOIN
     Indication: GENERALISED TONIC-CLONIC SEIZURE
     Dosage: UNK
     Route: 048
     Dates: start: 1966, end: 2009
  8. DILANTIN [Suspect]
     Active Substance: PHENYTOIN
     Dosage: 300 MG (100 MG ONE CAPSULE AM AND TWO CAPSULES PM)
     Route: 048
     Dates: start: 20081203, end: 20090827
  9. LAMICTAL [Concomitant]
     Active Substance: LAMOTRIGINE
     Indication: SEIZURE
     Dosage: 400 MG, 2X/DAY (200 MG TABLET ORALLY TWO TABLETS TWICE DAILY)
     Route: 048
     Dates: start: 20070924
  10. DILANTIN [Suspect]
     Active Substance: PHENYTOIN
     Indication: GENERALISED TONIC-CLONIC SEIZURE
     Dosage: 100 MG, 3X/DAY
     Route: 048
     Dates: start: 20060621
  11. DILANTIN [Suspect]
     Active Substance: PHENYTOIN
     Dosage: UNK
     Dates: start: 201201
  12. PHENOBARBITAL. [Concomitant]
     Active Substance: PHENOBARBITAL
     Dosage: UNK
     Dates: start: 2009
  13. ATIVAN [Concomitant]
     Active Substance: LORAZEPAM
     Indication: SEIZURE
     Dosage: UNK
     Dates: start: 2009
  14. PHENOBARBITAL. [Concomitant]
     Active Substance: PHENOBARBITAL
     Dosage: UNK
     Dates: start: 2011
  15. KEPPRA [Concomitant]
     Active Substance: LEVETIRACETAM
     Indication: SEIZURE
     Dosage: UNK
     Dates: start: 2009
  16. ONFI [Concomitant]
     Active Substance: CLOBAZAM
     Indication: SEIZURE
     Dosage: UNK
     Dates: start: 2012
  17. LAMOTRIGINE. [Concomitant]
     Active Substance: LAMOTRIGINE
     Indication: SEIZURE
     Dosage: 5 DF, 3X/DAY
  18. LEVETIRACETAM. [Concomitant]
     Active Substance: LEVETIRACETAM
     Indication: SEIZURE
     Dosage: 3 DF, 2X/DAY

REACTIONS (9)
  - Speech disorder [Not Recovered/Not Resolved]
  - Drug dependence [Unknown]
  - Vitamin D deficiency [Unknown]
  - Gingival hypertrophy [Unknown]
  - Cognitive disorder [Not Recovered/Not Resolved]
  - Bone metabolism disorder [Unknown]
  - Cerebellar atrophy [Not Recovered/Not Resolved]
  - Osteoporosis [Unknown]
  - Ataxia [Not Recovered/Not Resolved]

NARRATIVE: CASE EVENT DATE: 20070924
